FAERS Safety Report 9057901 (Version 1)
Quarter: 2013Q1

REPORT INFORMATION
  Report Type: Spontaneous
  Country: US (occurrence: US)
  Receive Date: 20130210
  Receipt Date: 20130210
  Transmission Date: 20140127
  Serious: No
  Sender: FDA-Public Use
  Company Number: US-009507513-1302USA001250

PATIENT
  Sex: Female

DRUGS (1)
  1. AZASITE [Suspect]
     Indication: OCULAR ROSACEA
     Dosage: 1 DROP TO EACH EYE TID FOR 3 DAYS, FOLLOWED BY 1 DROP TO EACH EYE ONCE FOR 6 WEEKS
     Route: 047

REACTIONS (4)
  - Prescribed overdose [Unknown]
  - Incorrect drug administration duration [Unknown]
  - Product quality issue [Unknown]
  - No adverse event [Unknown]
